FAERS Safety Report 19429853 (Version 1)
Quarter: 2021Q2

REPORT INFORMATION
  Report Type: Spontaneous
  Country: FR (occurrence: FR)
  Receive Date: 20210617
  Receipt Date: 20210617
  Transmission Date: 20210717
  Serious: Yes (Other)
  Sender: FDA-Public Use
  Company Number: FR-TEVA-2021-FR-1922767

PATIENT
  Age: 63 Year
  Sex: Female
  Weight: 61 kg

DRUGS (11)
  1. LYNPARZA [Suspect]
     Active Substance: OLAPARIB
     Indication: OVARIAN CANCER RECURRENT
     Dosage: UNSPECIFIED
     Route: 048
     Dates: start: 201411, end: 201502
  2. CARBOPLATINE [Suspect]
     Active Substance: CARBOPLATIN
     Dosage: 4 CURES:UNIT DOSE:520MILLIGRAM
     Route: 042
     Dates: start: 20160211, end: 20160503
  3. LYNPARZA [Suspect]
     Active Substance: OLAPARIB
     Dosage: 400MG MORNING AND EVENING EVERY DAY:UNIT DOSE:800MILLIGRAM
     Route: 048
     Dates: start: 201712, end: 202009
  4. GEMCITABINE. [Suspect]
     Active Substance: GEMCITABINE
     Indication: OVARIAN CANCER RECURRENT
     Dosage: 7 CURES:UNIT DOSE:4000MILLIGRAM
     Route: 042
     Dates: start: 20160211, end: 20160503
  5. CARBOPLATINE [Suspect]
     Active Substance: CARBOPLATIN
     Dosage: 6 CURES:UNIT DOSE:55MILLIGRAM
     Route: 042
     Dates: start: 20140801, end: 20141114
  6. PACLITAXEL. [Suspect]
     Active Substance: PACLITAXEL
     Indication: OVARIAN CANCER RECURRENT
     Dosage: 14 DOSES ON D1, D8, D15 (28?DAY CYCLES):UNIT DOSE:326MILLIGRAM
     Route: 042
     Dates: start: 20170629, end: 20171205
  7. AVASTIN [Suspect]
     Active Substance: BEVACIZUMAB
     Indication: OVARIAN CANCER RECURRENT
     Dosage: 23 CURES:UNIT DOSE:945MILLIGRAM
     Route: 042
     Dates: start: 20160211, end: 20170530
  8. CAELYX 2 MG/ML, SOLUTION A DILUER POUR PERFUSION [Suspect]
     Active Substance: DOXORUBICIN HYDROCHLORIDE
     Indication: OVARIAN CANCER RECURRENT
     Dosage: 4 CURES:UNIT DOSE:48MILLIGRAM
     Route: 042
     Dates: start: 20200917, end: 20201210
  9. PACLITAXEL. [Suspect]
     Active Substance: PACLITAXEL
     Dosage: 6 CURES:UNIT DOSE:280MILLIGRAM
     Route: 042
     Dates: start: 20140808, end: 20141114
  10. CARBOPLATINE [Suspect]
     Active Substance: CARBOPLATIN
     Indication: OVARIAN CANCER RECURRENT
     Dosage: 4 CURES:UNIT DOSE:440MILLIGRAM
     Route: 042
     Dates: start: 20200917, end: 20201210
  11. CARBOPLATINE [Suspect]
     Active Substance: CARBOPLATIN
     Dosage: 6 CURES:UNIT DOSE:680MILLIGRAM
     Route: 042
     Dates: start: 20170629, end: 20171128

REACTIONS (1)
  - Myelodysplastic syndrome [Not Recovered/Not Resolved]

NARRATIVE: CASE EVENT DATE: 20210125
